FAERS Safety Report 8107570 (Version 4)
Quarter: 2012Q4

REPORT INFORMATION
  Report Type: 
  Country: US (occurrence: US)
  Receive Date: 20110825
  Receipt Date: 20121101
  Transmission Date: 20130627
  Serious: Yes (Hospitalization)
  Sender: FDA-Public Use
  Company Number: US-ASTRAZENECA-2011SE48872

PATIENT
  Age: 46 Year
  Sex: Male
  Weight: 63.5 kg

DRUGS (5)
  1. NEXIUM EERD [Suspect]
     Indication: DYSPEPSIA
     Route: 048
     Dates: start: 2008
  2. NEXIUM EERD [Suspect]
     Indication: ULCER
     Route: 048
     Dates: start: 2008
  3. SEROQUEL XR [Suspect]
     Indication: PSYCHOTIC DISORDER
     Route: 048
     Dates: start: 2009
  4. SEROQUEL XR [Suspect]
     Indication: PSYCHOTIC DISORDER
     Route: 048
     Dates: start: 201010
  5. ZOLOFT [Concomitant]
     Indication: DEPRESSION
     Route: 048
     Dates: start: 2009

REACTIONS (7)
  - Accident at work [Unknown]
  - Intervertebral disc displacement [Unknown]
  - Back pain [Unknown]
  - Ulcer [Unknown]
  - Dyspepsia [Unknown]
  - Drug dispensing error [Unknown]
  - Drug dose omission [Unknown]
